FAERS Safety Report 8104599-3 (Version None)
Quarter: 2012Q1

REPORT INFORMATION
  Report Type: 
  Country: None (occurrence: None)
  Receive Date: 20120201
  Receipt Date: 20120117
  Transmission Date: 20120608
  Serious: Yes (Hospitalization)
  Sender: FDA-Public Use
  Company Number: US-JUTA GMBH-2012-01382

PATIENT
  Age: 70 Year
  Sex: Male

DRUGS (9)
  1. CARVEDILOL [Suspect]
     Indication: ATRIAL FIBRILLATION
  2. VALSARTAN [Suspect]
     Indication: HYPERTENSION
  3. CARVEDILOL [Suspect]
     Indication: HYPERTENSION
  4. SPIRONOLACTONE [Suspect]
     Indication: ATRIAL FIBRILLATION
  5. SPIRONOLACTONE [Suspect]
     Indication: DIABETES MELLITUS
     Route: 065
  6. VALSARTAN [Suspect]
     Indication: ATRIAL FIBRILLATION
  7. CARVEDILOL [Suspect]
     Indication: DIABETES MELLITUS
     Route: 065
  8. VALSARTAN [Suspect]
     Indication: DIABETES MELLITUS
     Route: 065
  9. SPIRONOLACTONE [Suspect]
     Indication: HYPERTENSION

REACTIONS (7)
  - SINUS ARREST [None]
  - ATRIOVENTRICULAR BLOCK [None]
  - RALES [None]
  - OEDEMA [None]
  - NODAL RHYTHM [None]
  - RESPIRATORY DISTRESS [None]
  - HYPERKALAEMIA [None]
